FAERS Safety Report 25595687 (Version 1)
Quarter: 2025Q3

REPORT INFORMATION
  Report Type: Spontaneous
  Country: TR (occurrence: TR)
  Receive Date: 20250723
  Receipt Date: 20250723
  Transmission Date: 20251020
  Serious: Yes (Death, Life-Threatening, Other)
  Sender: AMGEN
  Company Number: TR-AMGEN-TURSP2025141462

PATIENT
  Age: 58 Year
  Sex: Male

DRUGS (12)
  1. FILGRASTIM [Suspect]
     Active Substance: FILGRASTIM
     Indication: Neutropenia
     Route: 065
     Dates: start: 2024
  2. METHOTREXATE [Concomitant]
     Active Substance: METHOTREXATE
     Indication: Central nervous system lymphoma
     Dosage: 3000 MILLIGRAM/SQ. METER, QD
     Route: 029
     Dates: start: 20240902
  3. CYTARABINE [Concomitant]
     Active Substance: CYTARABINE
     Indication: Central nervous system lymphoma
     Dosage: 1000 MILLIGRAM/SQ. METER, QD
     Dates: start: 20240902
  4. RITUXIMAB [Concomitant]
     Active Substance: RITUXIMAB
     Indication: Central nervous system lymphoma
     Dosage: 375 MILLIGRAM/SQ. METER, QD
     Dates: start: 20240902
  5. MICAFUNGIN [Concomitant]
     Active Substance: MICAFUNGIN SODIUM
  6. PREDNISOLONE [Concomitant]
     Active Substance: PREDNISOLONE
  7. CEFOPERAZONE [Concomitant]
     Active Substance: CEFOPERAZONE
  8. SULBACTAM [Concomitant]
     Active Substance: SULBACTAM
  9. IVIGLOB EX [Concomitant]
     Active Substance: HUMAN IMMUNOGLOBULIN G
  10. CYCLOSPORINE [Concomitant]
     Active Substance: CYCLOSPORINE
     Indication: Skin lesion
  11. MEROPENEM [Concomitant]
     Active Substance: MEROPENEM
  12. DAPTOMYCIN [Concomitant]
     Active Substance: DAPTOMYCIN

REACTIONS (4)
  - Multiple organ dysfunction syndrome [Fatal]
  - Acute kidney injury [Unknown]
  - Hypoxia [Unknown]
  - Neutropenia [Unknown]

NARRATIVE: CASE EVENT DATE: 20240101
